FAERS Safety Report 11174800 (Version 1)
Quarter: 2015Q2

REPORT INFORMATION
  Report Type: Spontaneous
  Country: US (occurrence: None)
  Receive Date: 20150608
  Receipt Date: 20150608
  Transmission Date: 20150821
  Serious: Yes (Hospitalization)
  Sender: FDA-Public Use
  Company Number: None

PATIENT
  Age: 67 Year
  Sex: Male
  Weight: 60 kg

DRUGS (3)
  1. ELOXATIN [Suspect]
     Active Substance: OXALIPLATIN
     Dates: end: 20150519
  2. 5-FLUROURACIL [Suspect]
     Active Substance: FLUOROURACIL
     Dates: end: 20150519
  3. LEUCOVORIN CALCIUM. [Suspect]
     Active Substance: LEUCOVORIN CALCIUM
     Dates: end: 20150519

REACTIONS (11)
  - Malaise [None]
  - Pyrexia [None]
  - Liver disorder [None]
  - Transaminases increased [None]
  - Cholelithiasis [None]
  - Night sweats [None]
  - Lung disorder [None]
  - Decreased appetite [None]
  - Cough [None]
  - Asthenia [None]
  - Chills [None]

NARRATIVE: CASE EVENT DATE: 20150527
